FAERS Safety Report 9458349 (Version 2)
Quarter: 2013Q3

REPORT INFORMATION
  Report Type: Spontaneous
  Country: FR (occurrence: FR)
  Receive Date: 20130814
  Receipt Date: 20130820
  Transmission Date: 20140515
  Serious: Yes (Hospitalization)
  Sender: FDA-Public Use
  Company Number: FR-MERCK-1308FRA003067

PATIENT
  Age: 85 Year
  Sex: Male

DRUGS (5)
  1. SINEMET L.P. [Suspect]
     Indication: PARKINSON^S DISEASE
     Dosage: 1 DF, BID
     Route: 048
     Dates: start: 20130629
  2. SINEMET L.P. [Suspect]
     Dosage: 1 DF, QD
     Route: 048
     Dates: start: 20130703
  3. DOLIPRANE [Concomitant]
     Dosage: 1 DF, TID
     Route: 048
     Dates: start: 20130629
  4. HEMIGOXINE NATIVELLE [Concomitant]
     Dosage: 1 DF, QD
     Route: 048
     Dates: end: 20130628
  5. DIGOXINE NATIVELLE [Concomitant]
     Dosage: 1 DF, QD
     Route: 048
     Dates: start: 20130626

REACTIONS (3)
  - Disinhibition [Recovered/Resolved]
  - Aggression [Recovered/Resolved]
  - Agitation [Recovered/Resolved]
